FAERS Safety Report 9994816 (Version 2)
Quarter: 2014Q3

REPORT INFORMATION
  Report Type: Report from Study
  Country: DE (occurrence: DE)
  Receive Date: 20140311
  Receipt Date: 20140806
  Transmission Date: 20150326
  Serious: Yes (Hospitalization)
  Sender: FDA-Public Use
  Company Number: DE-UCBSA-114097

PATIENT
  Sex: Female

DRUGS (17)
  1. MTX [Concomitant]
     Active Substance: METHOTREXATE SODIUM
     Dosage: 20 MG
     Dates: start: 201203
  2. FOLIC ACID. [Concomitant]
     Active Substance: FOLIC ACID
     Dosage: 5 MG; 2 TABLETS
     Dates: start: 200505
  3. SALBUTAMOL [Concomitant]
     Active Substance: ALBUTEROL
     Dosage: 0.1 AS REQUIRED
     Dates: start: 201101
  4. VENLAFAXINE [Concomitant]
     Active Substance: VENLAFAXINE HYDROCHLORIDE
  5. BUDIAIR [Concomitant]
     Dosage: 200 2X1 PUFFS
  6. INUVAIR [Concomitant]
     Active Substance: BECLOMETHASONE DIPROPIONATE\FORMOTEROL FUMARATE
     Dosage: 2X1 PUFFS
     Dates: start: 201202
  7. CERTOLIZUMAB PEGOL RA [Suspect]
     Active Substance: CERTOLIZUMAB PEGOL
     Dosage: 200 MG
     Dates: start: 2012, end: 201303
  8. PREDISOLONE [Concomitant]
     Active Substance: PREDNISOLONE
     Dosage: 7 MG/D
     Dates: start: 200805
  9. IBU [Concomitant]
     Active Substance: IBUPROFEN
     Dosage: 600 MG, AS NEEDED (PRN)
     Dates: start: 201202
  10. CALCILAC [Concomitant]
     Active Substance: CALCIUM CARBONATE
     Dosage: 1000 MG
     Dates: start: 200805
  11. CERTOLIZUMAB PEGOL RA [Suspect]
     Active Substance: CERTOLIZUMAB PEGOL
     Indication: RHEUMATOID ARTHRITIS
     Dosage: 400 UNK, UNK
     Dates: start: 201203, end: 2012
  12. RAMILICH OMEP [Concomitant]
  13. MTX [Concomitant]
     Active Substance: METHOTREXATE SODIUM
     Dosage: ON MONDAYS
     Route: 058
     Dates: start: 200505
  14. ALENDRONIC ACID [Concomitant]
     Active Substance: ALENDRONIC ACID
     Dosage: ON SATURDAYS
  15. PANTOPRAZOLE [Concomitant]
     Active Substance: PANTOPRAZOLE SODIUM
     Dosage: 20 MG
     Dates: start: 201108
  16. RAMIPRIL. [Concomitant]
     Active Substance: RAMIPRIL
     Dosage: 2.5 MG
     Dates: start: 201202
  17. ASPIRIN. [Concomitant]
     Active Substance: ASPIRIN
     Indication: MIGRAINE
     Dosage: 500 MG

REACTIONS (1)
  - Pleural effusion [Not Recovered/Not Resolved]

NARRATIVE: CASE EVENT DATE: 20130321
